FAERS Safety Report 8572656-3 (Version None)
Quarter: 2012Q3

REPORT INFORMATION
  Report Type: 
  Country: None (occurrence: None)
  Receive Date: 20120806
  Receipt Date: 20120524
  Transmission Date: 20120928
  Serious: No
  Sender: FDA-Public Use
  Company Number: US-009507513-2012SP024752

PATIENT

DRUGS (1)
  1. MIRALAX [Suspect]
     Indication: PRODUCT USED FOR UNKNOWN INDICATION
     Dosage: 17 G, QD
     Route: 048
     Dates: start: 20120329

REACTIONS (3)
  - INCORRECT DRUG ADMINISTRATION DURATION [None]
  - DIARRHOEA [None]
  - MALAISE [None]
